FAERS Safety Report 16238846 (Version 2)
Quarter: 2019Q2

REPORT INFORMATION
  Report Type: Spontaneous
  Country: CH (occurrence: CH)
  Receive Date: 20190425
  Receipt Date: 20190503
  Transmission Date: 20190711
  Serious: Yes (Other)
  Sender: FDA-Public Use
  Company Number: CH-PFIZER INC-2019173073

PATIENT
  Age: 62 Year
  Sex: Female
  Weight: 90 kg

DRUGS (9)
  1. EDARBYCLOR [Suspect]
     Active Substance: AZILSARTAN KAMEDOXOMIL\CHLORTHALIDONE
     Indication: HYPERTENSION
     Dosage: 40 MG, DAILY
     Route: 048
     Dates: end: 20180305
  2. ELIQUIS [Concomitant]
     Active Substance: APIXABAN
     Dosage: UNK
  3. CORDARONE [Suspect]
     Active Substance: AMIODARONE HYDROCHLORIDE
     Dosage: UNK
     Dates: start: 20180305, end: 20180305
  4. CO-AMOXICILLIN [Suspect]
     Active Substance: AMOXICILLIN\CLAVULANATE POTASSIUM
     Dosage: UNK
     Dates: start: 20180305, end: 20180305
  5. OLFEN [DICLOFENAC SODIUM] [Suspect]
     Active Substance: DICLOFENAC SODIUM
     Dosage: 2X75 MG (UNKLAR, OB UND WIEVIEL AM 5.3. EINGENOMMEN)
     Route: 048
     Dates: start: 20180305, end: 20180305
  6. GLIMERYL MEPHA [Concomitant]
     Dosage: UNK
     Dates: end: 20180305
  7. METFORMIN HCL [Suspect]
     Active Substance: METFORMIN HYDROCHLORIDE
     Indication: TYPE 2 DIABETES MELLITUS
     Dosage: 1000, UNK
     Route: 048
     Dates: end: 20180305
  8. ONGLYZA [Concomitant]
     Active Substance: SAXAGLIPTIN HYDROCHLORIDE
     Dosage: UNK
     Dates: end: 20180305
  9. PANTOZOL [Concomitant]
     Active Substance: PANTOPRAZOLE SODIUM
     Dosage: UNK
     Dates: end: 20180305

REACTIONS (5)
  - Transaminases increased [Recovered/Resolved]
  - Blood potassium increased [Unknown]
  - Lactic acidosis [Recovering/Resolving]
  - Toxicity to various agents [Recovered/Resolved]
  - Renal failure [Recovering/Resolving]

NARRATIVE: CASE EVENT DATE: 20180302
